FAERS Safety Report 4960191-0 (Version None)
Quarter: 2006Q1

REPORT INFORMATION
  Report Type: 
  Country: None (occurrence: None)
  Receive Date: 20060331
  Receipt Date: 20060320
  Transmission Date: 20060701
  Serious: Yes (Life-Threatening)
  Sender: FDA-Public Use
  Company Number: JP-ABBOTT-06P-087-0328652-00

PATIENT
  Sex: Male

DRUGS (38)
  1. AKINETON INJECTION [Suspect]
     Indication: AKATHISIA
     Route: 030
     Dates: start: 20050918, end: 20050918
  2. SULTOPRIDE [Suspect]
     Indication: MANIA
     Route: 048
     Dates: start: 20050918, end: 20050918
  3. SULTOPRIDE [Suspect]
     Route: 048
     Dates: start: 20050827, end: 20050830
  4. SULTOPRIDE [Suspect]
     Route: 048
     Dates: start: 20050831, end: 20050903
  5. SULTOPRIDE [Suspect]
     Route: 048
     Dates: start: 20050904, end: 20050909
  6. SULTOPRIDE [Suspect]
     Route: 048
     Dates: start: 20050910, end: 20050917
  7. RISPERIDONE [Concomitant]
     Indication: RESTLESSNESS
     Route: 048
     Dates: start: 20050827, end: 20050830
  8. RISPERIDONE [Concomitant]
     Indication: EXCITABILITY
     Route: 048
     Dates: start: 20050829, end: 20050903
  9. RISPERIDONE [Concomitant]
     Indication: HALLUCINATION
     Route: 048
     Dates: start: 20050904, end: 20050917
  10. RISPERIDONE [Concomitant]
     Indication: DELUSION
     Route: 048
     Dates: start: 20050918, end: 20050918
  11. PL GRANULE [Concomitant]
     Indication: UPPER RESPIRATORY TRACT INFLAMMATION
     Route: 048
     Dates: start: 20050909, end: 20050909
  12. LITHIUM CARBONATE [Concomitant]
     Indication: MANIA
     Route: 048
     Dates: start: 20050918, end: 20050918
  13. LITHIUM CARBONATE [Concomitant]
     Route: 048
     Dates: start: 20050827, end: 20050827
  14. LITHIUM CARBONATE [Concomitant]
     Route: 048
     Dates: start: 20050828, end: 20050902
  15. LITHIUM CARBONATE [Concomitant]
     Route: 048
     Dates: start: 20050903, end: 20050909
  16. LITHIUM CARBONATE [Concomitant]
     Route: 048
     Dates: start: 20050910, end: 20050917
  17. ETIZOLAM [Concomitant]
     Indication: SLEEP DISORDER
     Route: 048
     Dates: start: 20050827, end: 20050916
  18. TRIHEXYPHENIDYL HYDROCHLORIDE [Concomitant]
     Indication: PARKINSON'S DISEASE
     Route: 048
     Dates: start: 20050827, end: 20050918
  19. EXCELASE [Concomitant]
     Indication: PROPHYLAXIS AGAINST GASTROINTESTINAL ULCER
     Route: 048
     Dates: start: 20050827, end: 20050829
  20. VEGETAMIN A [Concomitant]
     Indication: SLEEP DISORDER
     Route: 048
     Dates: start: 20050827, end: 20050916
  21. FLUNITRAZEPAM [Concomitant]
     Indication: SLEEP DISORDER
     Route: 048
     Dates: start: 20050827, end: 20050829
  22. SENNA LEAF [Concomitant]
     Indication: CONSTIPATION
     Route: 048
     Dates: start: 20050827, end: 20050916
  23. DIAZEPAM [Concomitant]
     Indication: RESTLESSNESS
     Route: 030
     Dates: start: 20050827, end: 20050828
  24. DIAZEPAM [Concomitant]
     Indication: EXCITABILITY
  25. THIAMINE HCL [Concomitant]
     Indication: RESTLESSNESS
     Route: 030
     Dates: start: 20050827, end: 20050827
  26. THIAMINE HCL [Concomitant]
     Indication: EXCITABILITY
  27. LEVOMEPROMAZINE [Concomitant]
     Indication: RESTLESSNESS
     Route: 030
     Dates: start: 20050828, end: 20050828
  28. LEVOMEPROMAZINE [Concomitant]
     Indication: EXCITABILITY
     Route: 048
     Dates: start: 20050830, end: 20050911
  29. QUAZEPAM [Concomitant]
     Indication: SLEEP DISORDER
     Route: 048
     Dates: start: 20050830, end: 20050918
  30. ALDIOXA [Concomitant]
     Indication: GASTRITIS
     Route: 048
     Dates: start: 20050830, end: 20050919
  31. CARBAMAZEPINE [Concomitant]
     Indication: MANIA
     Route: 048
     Dates: start: 20050831, end: 20050913
  32. STRONGER NEO-MINOPHAGEN C [Concomitant]
     Indication: DRUG ERUPTION
     Dates: start: 20050910, end: 20050914
  33. SOLITA-T3 INJECTION [Concomitant]
     Indication: DRUG ERUPTION
     Dates: start: 20050910, end: 20050912
  34. SOLITA-T3 INJECTION [Concomitant]
     Indication: DEHYDRATION
  35. NEOLAMIN 3B INJ. [Concomitant]
     Indication: DRUG ERUPTION
     Dates: start: 20050910, end: 20050912
  36. NEOLAMIN 3B INJ. [Concomitant]
     Indication: UPPER RESPIRATORY TRACT INFLAMMATION
  37. ASCORBIC ACID [Concomitant]
     Indication: DRUG ERUPTION
     Dates: start: 20050910, end: 20050912
  38. ASCORBIC ACID [Concomitant]
     Indication: UPPER RESPIRATORY TRACT INFLAMMATION

REACTIONS (6)
  - EYE DISCHARGE [None]
  - OEDEMA MUCOSAL [None]
  - PHARYNGOLARYNGEAL PAIN [None]
  - RESTLESSNESS [None]
  - SWELLING FACE [None]
  - TOXIC SKIN ERUPTION [None]
